FAERS Safety Report 8413282-6 (Version None)
Quarter: 2012Q2

REPORT INFORMATION
  Report Type: 
  Country: None (occurrence: None)
  Receive Date: 20120605
  Receipt Date: 20120602
  Transmission Date: 20120825
  Serious: Yes (Other)
  Sender: FDA-Public Use
  Company Number: PHEH2012US011171

PATIENT
  Sex: Female

DRUGS (4)
  1. KLOR-CON [Concomitant]
     Dosage: 20 MG, UNK
  2. EXFORGE HCT [Suspect]
     Dosage: 320/10/UNKNOWN MG, DAILY
  3. CENTRUM [Concomitant]
     Dosage: UNK UKN, DAILY
  4. EXFORGE HCT [Suspect]

REACTIONS (8)
  - OEDEMA PERIPHERAL [None]
  - NAUSEA [None]
  - VOMITING [None]
  - LOSS OF CONSCIOUSNESS [None]
  - ASTHENIA [None]
  - ARTHROPOD STING [None]
  - SWELLING [None]
  - BLOOD PRESSURE INCREASED [None]
